FAERS Safety Report 8707801 (Version 2)
Quarter: 2013Q4

REPORT INFORMATION
  Report Type: Spontaneous
  Country: US (occurrence: US)
  Receive Date: 20120806
  Receipt Date: 20131106
  Transmission Date: 20140711
  Serious: Yes (Hospitalization)
  Sender: FDA-Public Use
  Company Number: US-009507513-1207USA010618

PATIENT
  Age: 55 Year
  Sex: Female

DRUGS (4)
  1. ZOCOR [Suspect]
     Dosage: 20 MG, QD
  2. METFORMIN HYDROCHLORIDE [Suspect]
     Dosage: 1000 MG, TID
  3. RAMIPRIL [Suspect]
     Dosage: 10 MG, QD
  4. ATENOLOL [Suspect]
     Dosage: 50 MG, QD

REACTIONS (8)
  - Renal failure acute [Unknown]
  - Continuous haemodiafiltration [Unknown]
  - Electrocardiogram T wave peaked [Unknown]
  - Anion gap increased [Unknown]
  - Lactic acidosis [Unknown]
  - Blood pressure immeasurable [Unknown]
  - Fatigue [Unknown]
  - Depressed level of consciousness [Unknown]
